FAERS Safety Report 7829495-8 (Version None)
Quarter: 2011Q4

REPORT INFORMATION
  Report Type: 
  Country: None (occurrence: None)
  Receive Date: 20111020
  Receipt Date: 20111014
  Transmission Date: 20120403
  Serious: Yes (Hospitalization)
  Sender: FDA-Public Use
  Company Number: US-GILEAD-2011-0045246

PATIENT

DRUGS (1)
  1. LETAIRIS [Suspect]
     Indication: PRODUCT USED FOR UNKNOWN INDICATION
     Dosage: 5 MG, UNK
     Route: 048
     Dates: start: 20110909, end: 20111011

REACTIONS (5)
  - PYREXIA [None]
  - CARDIAC FAILURE CONGESTIVE [None]
  - LUNG DISORDER [None]
  - DYSPNOEA [None]
  - ASCITES [None]
